FAERS Safety Report 15497735 (Version 1)
Quarter: 2018Q4

REPORT INFORMATION
  Report Type: Other
  Country: ES (occurrence: ES)
  Receive Date: 20181015
  Receipt Date: 20181015
  Transmission Date: 20190205
  Serious: Yes (Death, Other)
  Sender: FDA-Public Use
  Company Number: ES-APOTEX-2018AP022427

PATIENT
  Age: 56 Year
  Sex: Female

DRUGS (4)
  1. BROMAZEPAM [Suspect]
     Active Substance: BROMAZEPAM
     Indication: SUICIDE ATTEMPT
     Dosage: 15 MG, UNK, IN TOTAL
     Route: 048
     Dates: start: 20170313, end: 20170313
  2. VOLTAREN [Suspect]
     Active Substance: DICLOFENAC SODIUM
     Indication: SUICIDE ATTEMPT
     Dosage: 750 MG, UNK IN TOTAL
     Route: 048
     Dates: start: 20170313, end: 20170313
  3. PARACETAMOL [Suspect]
     Active Substance: ACETAMINOPHEN
     Indication: SUICIDE ATTEMPT
     Dosage: 3 G, UNK IN TOTAL
     Route: 048
     Dates: start: 20170313, end: 20170313
  4. CLORAZEPATO NORMON [Suspect]
     Active Substance: CLORAZEPATE DIPOTASSIUM
     Indication: SUICIDE ATTEMPT
     Dosage: 300 MG, UNK  IN TOTAL
     Route: 048
     Dates: start: 20170313, end: 20170313

REACTIONS (3)
  - Multiple organ dysfunction syndrome [Fatal]
  - Acute kidney injury [Fatal]
  - Acute hepatic failure [Fatal]

NARRATIVE: CASE EVENT DATE: 20170314
